FAERS Safety Report 12575839 (Version 2)
Quarter: 2016Q3

REPORT INFORMATION
  Report Type: Spontaneous
  Country: US (occurrence: US)
  Receive Date: 20160720
  Receipt Date: 20160720
  Transmission Date: 20161109
  Serious: No
  Sender: FDA-Public Use
  Company Number: US-ELI_LILLY_AND_COMPANY-US201607005400

PATIENT
  Age: 7 Year
  Sex: Female

DRUGS (3)
  1. STRATTERA [Suspect]
     Active Substance: ATOMOXETINE HYDROCHLORIDE
     Indication: ATTENTION DEFICIT/HYPERACTIVITY DISORDER
     Dosage: 10 MG, UNKNOWN
     Route: 065
     Dates: start: 201606
  2. STRATTERA [Suspect]
     Active Substance: ATOMOXETINE HYDROCHLORIDE
     Dosage: 10 MG, BID
     Route: 065
     Dates: start: 201607
  3. STRATTERA [Suspect]
     Active Substance: ATOMOXETINE HYDROCHLORIDE
     Dosage: 25 MG, QD
     Route: 065
     Dates: start: 201606

REACTIONS (5)
  - Fatigue [Recovered/Resolved]
  - Somnolence [Recovered/Resolved]
  - Anger [Recovered/Resolved]
  - Drug effect increased [Recovered/Resolved]
  - Drug effect decreased [Recovered/Resolved]
